FAERS Safety Report 11206706 (Version 1)
Quarter: 2015Q2

REPORT INFORMATION
  Report Type: Spontaneous
  Country: IT (occurrence: IT)
  Receive Date: 20150622
  Receipt Date: 20150622
  Transmission Date: 20150821
  Serious: Yes (Other)
  Sender: FDA-Public Use
  Company Number: IT-BAYER-2015-362122

PATIENT
  Age: 85 Year
  Sex: Female

DRUGS (5)
  1. LUCEN [Concomitant]
     Active Substance: ESOMEPRAZOLE
  2. TORVAST [Concomitant]
     Active Substance: ATORVASTATIN
  3. CARDIOASPIRIN [Suspect]
     Active Substance: ASPIRIN
     Indication: PROPHYLAXIS
     Dosage: 1 DF, QD
     Route: 048
     Dates: start: 20150129, end: 20150526
  4. LEXOTAN [Concomitant]
     Active Substance: BROMAZEPAM
  5. ANTACAL [Concomitant]
     Active Substance: AMLODIPINE BESYLATE

REACTIONS (1)
  - Epistaxis [Recovering/Resolving]

NARRATIVE: CASE EVENT DATE: 20150526
